FAERS Safety Report 10609153 (Version 2)
Quarter: 2014Q4

REPORT INFORMATION
  Report Type: Spontaneous
  Country: IT (occurrence: IT)
  Receive Date: 20141126
  Receipt Date: 20141126
  Transmission Date: 20150529
  Serious: Yes (Hospitalization)
  Sender: FDA-Public Use
  Company Number: IT-AUROBINDO-AUR-APL-2014-08530

PATIENT
  Age: 64 Year
  Sex: Male

DRUGS (1)
  1. AMOXICILLIN. [Suspect]
     Active Substance: AMOXICILLIN
     Indication: PHARYNGOTONSILLITIS
     Dosage: 2 G, TOTAL
     Route: 048
     Dates: start: 20140529, end: 20140529

REACTIONS (3)
  - Dyspnoea [Recovering/Resolving]
  - Tongue oedema [Recovering/Resolving]
  - Macroglossia [Recovering/Resolving]

NARRATIVE: CASE EVENT DATE: 20140529
